FAERS Safety Report 21004286 (Version 1)
Quarter: 2022Q2

REPORT INFORMATION
  Report Type: Spontaneous
  Country: US (occurrence: None)
  Receive Date: 20220624
  Receipt Date: 20220624
  Transmission Date: 20220721
  Serious: No
  Sender: FDA-Public Use
  Company Number: None

PATIENT
  Age: 59 Year
  Sex: Male
  Weight: 130.18 kg

DRUGS (2)
  1. OTEZLA [Suspect]
     Active Substance: APREMILAST
     Indication: Psoriatic arthropathy
     Dosage: OTHER QUANTITY : TAKE 1 TABLET;?FREQUENCY : DAILY;?
     Route: 048
     Dates: start: 202104
  2. OTEZLA [Suspect]
     Active Substance: APREMILAST
     Indication: Psoriasis

REACTIONS (2)
  - Chest pain [None]
  - Dyspnoea [None]
